FAERS Safety Report 11091179 (Version 1)
Quarter: 2015Q2

REPORT INFORMATION
  Report Type: Spontaneous
  Country: US (occurrence: US)
  Receive Date: 20150505
  Receipt Date: 20150505
  Transmission Date: 20150821
  Serious: No
  Sender: FDA-Public Use
  Company Number: US-PFIZER INC-2015151273

PATIENT
  Age: 83 Year
  Sex: Male

DRUGS (2)
  1. SUTENT [Suspect]
     Active Substance: SUNITINIB MALATE
     Dosage: 50 MG, DAILY
     Dates: start: 201404
  2. SUTENT [Suspect]
     Active Substance: SUNITINIB MALATE
     Dosage: 12.5 MG, DAILY (2 WEEKS ON AND 2 WEEKS OFF)
     Dates: start: 20140801

REACTIONS (6)
  - Asthenia [Unknown]
  - Weight decreased [Unknown]
  - Mood altered [Unknown]
  - Eating disorder [Unknown]
  - Hyperacusis [Unknown]
  - Anaemia [Unknown]
